FAERS Safety Report 6412178-9 (Version None)
Quarter: 2009Q4

REPORT INFORMATION
  Report Type: 
  Country: None (occurrence: None)
  Receive Date: 20091023
  Receipt Date: 20091015
  Transmission Date: 20100525
  Serious: Yes (Hospitalization)
  Sender: FDA-Public Use
  Company Number: A0812295A

PATIENT
  Sex: Female
  Weight: 55 kg

DRUGS (4)
  1. ELTROMBOPAG [Suspect]
     Indication: THROMBOCYTOPENIA
     Dosage: 25MG PER DAY
     Route: 048
     Dates: start: 20090903
  2. ELTROMBOPAG [Suspect]
     Dosage: 25MG PER DAY
     Route: 048
     Dates: start: 20090820, end: 20090902
  3. PEGASYS [Suspect]
     Dosage: 180MCG WEEKLY
     Route: 058
     Dates: start: 20090903
  4. COPEGUS [Suspect]
     Route: 048
     Dates: start: 20090903

REACTIONS (1)
  - PANCYTOPENIA [None]
